FAERS Safety Report 24787226 (Version 2)
Quarter: 2025Q3

REPORT INFORMATION
  Report Type: Report from Study
  Country: US (occurrence: US)
  Receive Date: 20241230
  Receipt Date: 20250809
  Transmission Date: 20251020
  Serious: Yes (Hospitalization, Other)
  Sender: ALEXION PHARMACEUTICALS
  Company Number: US-AstraZeneca-CH-00771705A

PATIENT
  Age: 83 Year
  Sex: Female

DRUGS (1)
  1. DAPAGLIFLOZIN [Suspect]
     Active Substance: DAPAGLIFLOZIN

REACTIONS (6)
  - Vulvar basal cell carcinoma [Unknown]
  - Escherichia urinary tract infection [Unknown]
  - Urinary tract infection enterococcal [Unknown]
  - Klebsiella urinary tract infection [Unknown]
  - Urine analysis abnormal [Unknown]
  - Fungal infection [Unknown]

NARRATIVE: CASE EVENT DATE: 20240701
